FAERS Safety Report 10088039 (Version 1)
Quarter: 2014Q2

REPORT INFORMATION
  Report Type: Spontaneous
  Country: IT (occurrence: IT)
  Receive Date: 20140420
  Receipt Date: 20140420
  Transmission Date: 20141212
  Serious: Yes (Other)
  Sender: FDA-Public Use
  Company Number: IT-009507513-1404ITA010453

PATIENT
  Age: 80 Year
  Sex: Female

DRUGS (3)
  1. INVANZ [Suspect]
     Indication: ENDOCARDITIS BACTERIAL
     Dosage: 500MG DAILY
     Route: 042
     Dates: start: 20140322, end: 20140409
  2. LEVOFLOXACIN [Suspect]
     Indication: ENDOCARDITIS BACTERIAL
     Dosage: 250MG DAILY
     Route: 048
     Dates: start: 20140228, end: 20140405
  3. MEROPENEM [Concomitant]
     Indication: ENDOCARDITIS BACTERIAL
     Dosage: UNK
     Route: 042
     Dates: start: 20140329, end: 20140413

REACTIONS (2)
  - Psychotic disorder [Recovered/Resolved]
  - Hallucination [Recovered/Resolved]
